FAERS Safety Report 24191345 (Version 2)
Quarter: 2024Q4

REPORT INFORMATION
  Report Type: Spontaneous
  Country: BR (occurrence: BR)
  Receive Date: 20240808
  Receipt Date: 20241003
  Transmission Date: 20250114
  Serious: Yes (Death, Hospitalization, Other)
  Sender: TAIHO ONCOLOGY INC
  Company Number: BR-SERVIER-S24009704

PATIENT
  Age: 41 Year
  Sex: Male
  Weight: 87 kg

DRUGS (1)
  1. LONSURF [Suspect]
     Active Substance: TIPIRACIL HYDROCHLORIDE\TRIFLURIDINE
     Indication: Gastrointestinal adenocarcinoma
     Dosage: 75 MG, BID, 15 DAYS BID AND 15 DAYS PAUSE
     Route: 048

REACTIONS (4)
  - Disease progression [Fatal]
  - Procedural pain [Not Recovered/Not Resolved]
  - Intestinal obstruction [Unknown]
  - Product use issue [Recovered/Resolved]

NARRATIVE: CASE EVENT DATE: 20240729
